FAERS Safety Report 11003106 (Version 27)
Quarter: 2022Q2

REPORT INFORMATION
  Report Type: Report from Study
  Country: CA (occurrence: CA)
  Receive Date: 20150409
  Receipt Date: 20220413
  Transmission Date: 20220721
  Serious: Yes (Hospitalization, Other)
  Sender: FDA-Public Use
  Company Number: PHHY2014CA170176

PATIENT
  Age: 61 Year
  Sex: Male

DRUGS (4)
  1. SANDOSTATIN LAR DEPOT [Suspect]
     Active Substance: OCTREOTIDE ACETATE
     Indication: Neuroendocrine tumour
     Dosage: 30 MG, Q4W (EVERY 4 WEEKS)
     Route: 030
     Dates: start: 20140812
  2. SANDOSTATIN LAR DEPOT [Suspect]
     Active Substance: OCTREOTIDE ACETATE
     Indication: Metastases to liver
  3. SANDOSTATIN LAR DEPOT [Suspect]
     Active Substance: OCTREOTIDE ACETATE
  4. METFORMIN [Concomitant]
     Active Substance: METFORMIN HYDROCHLORIDE
     Indication: Product used for unknown indication
     Dosage: 250 MG, QD
     Route: 065

REACTIONS (16)
  - Thrombosis [Unknown]
  - Epistaxis [Unknown]
  - Pneumonia bacterial [Unknown]
  - Fall [Unknown]
  - Pain in extremity [Unknown]
  - Gait disturbance [Unknown]
  - Back injury [Unknown]
  - Blood pressure increased [Unknown]
  - Gout [Unknown]
  - Chest pain [Recovered/Resolved]
  - Cardiac disorder [Unknown]
  - Needle issue [Unknown]
  - Product quality issue [Unknown]
  - Injection site pain [Unknown]
  - Underdose [Unknown]
  - Injection site haemorrhage [Unknown]

NARRATIVE: CASE EVENT DATE: 20141226
